FAERS Safety Report 10268528 (Version 2)
Quarter: 2014Q3

REPORT INFORMATION
  Report Type: Spontaneous
  Country: DE (occurrence: DE)
  Receive Date: 20140630
  Receipt Date: 20140718
  Transmission Date: 20150326
  Serious: Yes (Hospitalization)
  Sender: FDA-Public Use
  Company Number: PHHY2014DE079859

PATIENT
  Age: 77 Year
  Sex: Female

DRUGS (6)
  1. PROVAS [Suspect]
     Active Substance: VALSARTAN
     Dosage: 160 MG, UNK
  2. ASPIRIN. [Concomitant]
     Active Substance: ASPIRIN
     Dosage: UNK UKN, UNK
  3. SYMBICORT [Concomitant]
     Active Substance: BUDESONIDE\FORMOTEROL FUMARATE DIHYDRATE
     Dosage: UNK UKN, UNK
  4. AMLODIPIN//AMLODIPINE BESILATE [Concomitant]
     Dosage: UNK UKN, UNK
  5. EUTHYROX [Concomitant]
     Active Substance: LEVOTHYROXINE SODIUM
     Dosage: UNK UKN, UNK
  6. DIURETIC//HYDROCHLOROTHIAZIDE [Concomitant]
     Dosage: UNK UKN, UNK

REACTIONS (9)
  - Muscular weakness [Unknown]
  - Gait disturbance [Unknown]
  - Visual impairment [Unknown]
  - Cough [Unknown]
  - Fatigue [Unknown]
  - Myalgia [Unknown]
  - Nasal dryness [Unknown]
  - Asthenia [Unknown]
  - Pruritus [Unknown]
